FAERS Safety Report 9749710 (Version 2)
Quarter: 2013Q4

REPORT INFORMATION
  Report Type: Spontaneous
  Country: FR (occurrence: FR)
  Receive Date: 20131212
  Receipt Date: 20131217
  Transmission Date: 20140711
  Serious: Yes (Hospitalization, Other)
  Sender: FDA-Public Use
  Company Number: FR-BRISTOL-MYERS SQUIBB COMPANY-19886795

PATIENT
  Age: 49 Year
  Sex: Female

DRUGS (3)
  1. KENACORT INJ [Suspect]
     Indication: NASAL POLYPS
     Route: 030
     Dates: start: 2011
  2. AZACTAM FOR INJ 1 GM [Suspect]
     Indication: DIVERTICULITIS
     Dosage: LAST DOSE: 19SEP2013
     Route: 042
     Dates: start: 20130906
  3. METRONIDAZOLE [Suspect]
     Indication: DIVERTICULITIS
     Dosage: LAST DOSE: 19SEP2013
     Route: 042
     Dates: start: 20130906, end: 20130919

REACTIONS (3)
  - Diverticulitis [Unknown]
  - Retinal pigment epitheliopathy [Unknown]
  - Systolic hypertension [Unknown]
